FAERS Safety Report 14201808 (Version 7)
Quarter: 2025Q1

REPORT INFORMATION
  Report Type: Report from Study
  Country: CA (occurrence: CA)
  Receive Date: 20171117
  Receipt Date: 20250120
  Transmission Date: 20250409
  Serious: Yes (Hospitalization, Other)
  Sender: TAKEDA
  Company Number: CA-TAKEDA-2017TUS024077

PATIENT
  Sex: Male

DRUGS (16)
  1. VEDOLIZUMAB [Suspect]
     Active Substance: VEDOLIZUMAB
     Indication: Crohn^s disease
  2. VEDOLIZUMAB [Suspect]
     Active Substance: VEDOLIZUMAB
     Dosage: 300 MILLIGRAM, Q7WEEKS
     Dates: start: 20180516
  3. VEDOLIZUMAB [Suspect]
     Active Substance: VEDOLIZUMAB
  4. VEDOLIZUMAB [Suspect]
     Active Substance: VEDOLIZUMAB
  5. PANTOPRAZOLE SODIUM [Suspect]
     Active Substance: PANTOPRAZOLE SODIUM
     Indication: Product use in unapproved indication
  6. SULFASALAZINE [Concomitant]
     Active Substance: SULFASALAZINE
  7. VITAMIN D [Concomitant]
     Active Substance: VITAMIN D NOS
  8. FOLIC ACID [Concomitant]
     Active Substance: FOLIC ACID
  9. METOPROLOL [Concomitant]
     Active Substance: METOPROLOL
  10. DIGOXIN [Concomitant]
     Active Substance: DIGOXIN
  11. SYNTHROID [Concomitant]
     Active Substance: LEVOTHYROXINE SODIUM
  12. CORTISONE [Concomitant]
     Active Substance: CORTISONE
  13. LAVEMENT PHOSPHATE [Concomitant]
  14. Cortiment [Concomitant]
  15. PENTASOL [Concomitant]
  16. MESALAMINE [Concomitant]
     Active Substance: MESALAMINE

REACTIONS (10)
  - Arrhythmia [Unknown]
  - Pulmonary oedema [Unknown]
  - Coronary artery disease [Unknown]
  - Haemothorax [Unknown]
  - Pneumonia [Unknown]
  - Bronchitis [Recovered/Resolved]
  - Fall [Unknown]
  - Off label use [Unknown]
  - Dyspnoea [Unknown]
  - Fatigue [Unknown]

NARRATIVE: CASE EVENT DATE: 20180101
